FAERS Safety Report 18886293 (Version 1)
Quarter: 2021Q1

REPORT INFORMATION
  Report Type: Spontaneous
  Country: US (occurrence: US)
  Receive Date: 20210212
  Receipt Date: 20210212
  Transmission Date: 20210420
  Serious: No
  Sender: FDA-Public Use
  Company Number: US-ASTRAZENECA-2021A011069

PATIENT
  Sex: Female
  Weight: 84.4 kg

DRUGS (3)
  1. PULMICORT FLEXHALER [Suspect]
     Active Substance: BUDESONIDE
     Indication: COUGH
     Dosage: IF SHE NEEDS IT AND 2 PUFFS TWICE DAILY FOR DAYS OR WEEKS UNTIL RESOLVED AS REQUIRED
     Route: 055
     Dates: start: 202001
  2. VENTOLIN [Concomitant]
     Active Substance: ALBUTEROL SULFATE
  3. PULMICORT FLEXHALER [Suspect]
     Active Substance: BUDESONIDE
     Indication: COUGH
     Dosage: IF SHE NEEDS IT AND 2 PUFFS TWICE DAILY FOR DAYS OR WEEKS UNTIL RESOLVED AS REQUIRED
     Route: 055
     Dates: start: 202001

REACTIONS (7)
  - Intentional product misuse [Unknown]
  - Bronchitis [Unknown]
  - Medication error [Unknown]
  - Cough [Unknown]
  - Product use issue [Unknown]
  - Device issue [Unknown]
  - Dyspnoea [Unknown]
